FAERS Safety Report 12158677 (Version 1)
Quarter: 2016Q1

REPORT INFORMATION
  Report Type: Spontaneous
  Country: US (occurrence: None)
  Receive Date: 20160307
  Receipt Date: 20160307
  Transmission Date: 20160526
  Serious: Yes (Disabling)
  Sender: FDA-Public Use
  Company Number: None

PATIENT
  Age: 84 Year
  Sex: Female
  Weight: 63.05 kg

DRUGS (5)
  1. VITAMIN D [Concomitant]
     Active Substance: CHOLECALCIFEROL
  2. CLINDAMYCIN [Suspect]
     Active Substance: CLINDAMYCIN\CLINDAMYCIN PHOSPHATE
     Indication: CELLULITIS
     Dosage: 300 MG 30 3X A DAY MOUTH
     Route: 048
     Dates: start: 20151013, end: 20151021
  3. VALSARTAN. [Concomitant]
     Active Substance: VALSARTAN
  4. METOPROLOL. [Concomitant]
     Active Substance: METOPROLOL
  5. XARELTO [Concomitant]
     Active Substance: RIVAROXABAN

REACTIONS (10)
  - Dyspepsia [None]
  - Decreased appetite [None]
  - Weight decreased [None]
  - Chest discomfort [None]
  - Diarrhoea [None]
  - Chest pain [None]
  - Dysphagia [None]
  - Sensation of foreign body [None]
  - Abdominal pain upper [None]
  - Gastrointestinal disorder [None]

NARRATIVE: CASE EVENT DATE: 20151021
